FAERS Safety Report 9511854 (Version 2)
Quarter: 2013Q4

REPORT INFORMATION
  Report Type: Spontaneous
  Country: US (occurrence: US)
  Receive Date: 20130910
  Receipt Date: 20131115
  Transmission Date: 20140711
  Serious: Yes (Other)
  Sender: FDA-Public Use
  Company Number: US-BAYER-2013-107570

PATIENT
  Age: 36 Year
  Sex: Female
  Weight: 74.83 kg

DRUGS (7)
  1. MIRENA [Suspect]
     Indication: CONTRACEPTION
     Dosage: 20 MCG/24HR, CONT
     Route: 015
     Dates: start: 20070912, end: 20110617
  2. ZYRTEC [Concomitant]
  3. WELLBUTRIN [Concomitant]
  4. FEMCON FE [Concomitant]
     Indication: MENSTRUATION IRREGULAR
  5. OVCON [Concomitant]
  6. LEVLEN [Concomitant]
  7. JUNEL FE [Concomitant]

REACTIONS (10)
  - Uterine perforation [None]
  - Uterine fibrosis [None]
  - Pelvic pain [None]
  - Injury [None]
  - Emotional distress [None]
  - Discomfort [None]
  - Abdominal pain [None]
  - Abdominal distension [None]
  - Nausea [None]
  - Vomiting [None]
